FAERS Safety Report 9434754 (Version 1)
Quarter: 2013Q3

REPORT INFORMATION
  Report Type: Spontaneous
  Country: DK (occurrence: FR)
  Receive Date: 20130801
  Receipt Date: 20130801
  Transmission Date: 20140515
  Serious: Yes (Other)
  Sender: FDA-Public Use
  Company Number: FR-FRI-1000047325

PATIENT
  Age: 86 Year
  Sex: Female

DRUGS (5)
  1. ESCITALOPRAM [Suspect]
     Dosage: 1 DF
     Route: 048
     Dates: start: 20110713, end: 20130630
  2. IXPRIM [Suspect]
     Indication: PAIN
     Dosage: 2 DF
     Route: 048
     Dates: start: 20130618, end: 20130630
  3. LYRICA [Concomitant]
     Indication: NEURALGIA
     Dosage: 150 MG
     Dates: start: 201203
  4. LYRICA [Concomitant]
     Indication: EPILEPSY
     Dates: start: 20130702
  5. DAFALGAN [Concomitant]
     Dosage: 1000 MG

REACTIONS (2)
  - Epilepsy [Recovered/Resolved]
  - Drug interaction [Recovered/Resolved]
